FAERS Safety Report 7060526-1 (Version None)
Quarter: 2010Q4

REPORT INFORMATION
  Report Type: 
  Country: None (occurrence: None)
  Receive Date: 20101025
  Receipt Date: 20101012
  Transmission Date: 20110411
  Serious: Yes (Hospitalization, Other)
  Sender: FDA-Public Use
  Company Number: US-ELI_LILLY_AND_COMPANY-US201010003134

PATIENT
  Sex: Female

DRUGS (3)
  1. HUMALOG [Suspect]
     Indication: DIABETES MELLITUS
     Dosage: UNK, AS NEEDED
  2. HUMULIN N [Suspect]
     Indication: DIABETES MELLITUS
     Dosage: 15 U, EACH MORNING
     Dates: start: 19850101
  3. HUMULIN N [Suspect]
     Dosage: 30 U, EACH EVENING
     Dates: start: 19850101

REACTIONS (4)
  - DIABETIC COMA [None]
  - OESOPHAGEAL CARCINOMA [None]
  - VISUAL IMPAIRMENT [None]
  - WEIGHT DECREASED [None]
